FAERS Safety Report 7725779-2 (Version None)
Quarter: 2011Q3

REPORT INFORMATION
  Report Type: 
  Country: None (occurrence: None)
  Receive Date: 20110902
  Receipt Date: 20110824
  Transmission Date: 20111222
  Serious: Yes (Other)
  Sender: FDA-Public Use
  Company Number: IT-BRISTOL-MYERS SQUIBB COMPANY-15997620

PATIENT
  Age: 81 Year
  Sex: Female

DRUGS (4)
  1. ACETAMINOPHEN AND CODEINE PHOSPHATE [Suspect]
     Indication: HYPERPYREXIA
     Dosage: 1DF IS 500+30MG EFFERVESCENT TABS
     Dates: start: 20110813, end: 20110814
  2. ATORVASTATIN CALCIUM [Concomitant]
     Indication: HYPERCHOLESTEROLAEMIA
     Dosage: TABLET
     Route: 048
  3. ACITRETIN [Concomitant]
     Indication: PSORIASIS
     Dosage: CAPSULES
     Route: 048
  4. AMOXICILLIN [Suspect]
     Indication: PHARYNGITIS
     Route: 048

REACTIONS (1)
  - RASH [None]
